FAERS Safety Report 8358337-X (Version None)
Quarter: 2012Q2

REPORT INFORMATION
  Report Type: 
  Country: None (occurrence: None)
  Receive Date: 20120514
  Receipt Date: 20110426
  Transmission Date: 20120825
  Serious: No
  Sender: FDA-Public Use
  Company Number: US-ALEXION-A201100599

PATIENT
  Sex: Male

DRUGS (5)
  1. SOLIRIS [Suspect]
     Indication: PAROXYSMAL NOCTURNAL HAEMOGLOBINURIA
     Dosage: 900 MG Q12DAYS
     Route: 042
  2. OXYCONTIN [Concomitant]
     Indication: ABDOMINAL PAIN
     Dosage: UNK
  3. CYCLOSPORINE [Suspect]
     Dosage: 250 MG QD
  4. DILAUDID [Concomitant]
     Indication: ABDOMINAL PAIN
     Dosage: UNK
  5. DESFERAL [Suspect]

REACTIONS (5)
  - NAUSEA [None]
  - HAEMOGLOBIN DECREASED [None]
  - BLOOD LACTATE DEHYDROGENASE INCREASED [None]
  - VOMITING [None]
  - RETICULOCYTE COUNT INCREASED [None]
